FAERS Safety Report 25900678 (Version 1)
Quarter: 2025Q4

REPORT INFORMATION
  Report Type: Report from Study
  Country: US (occurrence: US)
  Receive Date: 20251009
  Receipt Date: 20251009
  Transmission Date: 20260118
  Serious: Yes (Other)
  Sender: TG THERAPEUTICS
  Company Number: US-TG THERAPEUTICS INC.-TGT006175

PATIENT

DRUGS (2)
  1. UBLITUXIMAB [Suspect]
     Active Substance: UBLITUXIMAB
     Indication: Multiple sclerosis
     Dosage: UNK
     Route: 042
     Dates: start: 20241205, end: 20241205
  2. UBLITUXIMAB [Suspect]
     Active Substance: UBLITUXIMAB
     Dosage: UNK
     Route: 042
     Dates: start: 20250819, end: 20250819

REACTIONS (2)
  - Knee arthroplasty [Unknown]
  - Blood iron decreased [Unknown]

NARRATIVE: CASE EVENT DATE: 20250924
